FAERS Safety Report 21477598 (Version 1)
Quarter: 2022Q4

REPORT INFORMATION
  Report Type: Spontaneous
  Country: TW (occurrence: None)
  Receive Date: 20221019
  Receipt Date: 20221019
  Transmission Date: 20230112
  Serious: Yes (Other)
  Sender: FDA-Public Use
  Company Number: TW-ROCHE-3202062

PATIENT
  Age: 56 Year
  Sex: Male

DRUGS (2)
  1. RITUXIMAB [Suspect]
     Active Substance: RITUXIMAB
     Indication: Diffuse large B-cell lymphoma
     Dosage: INDICATION FL, WITH DLBCL TRANSFORMATION, RCHOP, RDAEPOCH, BR, POLA+BR, R-ESHAP
     Route: 065
  2. POLATUZUMAB VEDOTIN [Suspect]
     Active Substance: POLATUZUMAB VEDOTIN
     Indication: Diffuse large B-cell lymphoma
     Dosage: POLA+BR
     Route: 065

REACTIONS (2)
  - Cytomegalovirus colitis [Unknown]
  - Deep vein thrombosis [Unknown]
